FAERS Safety Report 11174273 (Version 1)
Quarter: 2015Q2

REPORT INFORMATION
  Report Type: Spontaneous
  Country: GB (occurrence: None)
  Receive Date: 20150605
  Receipt Date: 20150605
  Transmission Date: 20150821
  Serious: Yes (Other)
  Sender: FDA-Public Use
  Company Number: ADR-2015-01075

PATIENT
  Sex: Female

DRUGS (8)
  1. BACLOFEN INTRATHECAL [Suspect]
     Active Substance: BACLOFEN
  2. TRAMADOL [Concomitant]
     Active Substance: TRAMADOL
  3. TILDIEM (DILTIAZEM HYDROCHLORIDE) [Concomitant]
  4. VENLAFAXIN [Concomitant]
     Active Substance: VENLAFAXINE HYDROCHLORIDE
  5. PREGABALINE [Concomitant]
     Active Substance: PREGABALIN
  6. GAVISCON (SODIUM ALGINATE, SODIUM BICARBONATE) [Concomitant]
  7. PIAZOFOLINA (MORINAMIDE HYDROCHLORIDE) [Concomitant]
  8. MONTELUKAST [Concomitant]
     Active Substance: MONTELUKAST SODIUM

REACTIONS (10)
  - Multiple sclerosis [None]
  - Eye pain [None]
  - Lower respiratory tract infection [None]
  - Muscle spasms [None]
  - Faecal incontinence [None]
  - Urinary tract infection [None]
  - Urinary incontinence [None]
  - Infection [None]
  - Fall [None]
  - Headache [None]
